FAERS Safety Report 23558478 (Version 1)
Quarter: 2024Q1

REPORT INFORMATION
  Report Type: Spontaneous
  Country: CN (occurrence: CN)
  Receive Date: 20240223
  Receipt Date: 20240223
  Transmission Date: 20240410
  Serious: Yes (Other)
  Sender: FDA-Public Use
  Company Number: CN-SUN PHARMACEUTICAL INDUSTRIES LTD-2024R1-432909

PATIENT
  Age: 37 Year
  Sex: Female
  Weight: 48 kg

DRUGS (3)
  1. GEMCITABINE [Suspect]
     Active Substance: GEMCITABINE
     Indication: Chemotherapy
     Dosage: 1,000 MG/M2
     Route: 065
  2. OXALIPLATIN [Suspect]
     Active Substance: OXALIPLATIN
     Indication: Chemotherapy
     Dosage: 85 MG/M2 ONCE EVERY FOUR WEEKS
     Route: 065
  3. DURVALUMAB [Suspect]
     Active Substance: DURVALUMAB
     Indication: Chemotherapy
     Dosage: 1,500 MG ONCE EVERY 3 WEEKS
     Route: 042

REACTIONS (11)
  - Decreased appetite [Unknown]
  - Discomfort [Unknown]
  - Ecchymosis [Unknown]
  - Fatigue [Unknown]
  - Hypoproteinaemia [Unknown]
  - Liver disorder [Unknown]
  - Myelosuppression [Unknown]
  - Nausea [Unknown]
  - Pain [Unknown]
  - Thrombocytopenia [Unknown]
  - Vomiting [Unknown]
